FAERS Safety Report 5484173-8 (Version None)
Quarter: 2007Q4

REPORT INFORMATION
  Report Type: 
  Country: None (occurrence: None)
  Receive Date: 20071012
  Receipt Date: 20070724
  Transmission Date: 20080405
  Serious: No
  Sender: FDA-Public Use
  Company Number: US-ASTRAZENECA-2007UW17938

PATIENT
  Age: 48 Year
  Sex: Female

DRUGS (3)
  1. SYMBICORT [Suspect]
     Indication: ASTHMA
     Dosage: 160/4.5, 2 PUFFS BID
     Route: 055
     Dates: start: 20070625
  2. SINGULAIR [Concomitant]
     Dates: end: 20070719
  3. XOPENEX [Concomitant]

REACTIONS (2)
  - THROAT TIGHTNESS [None]
  - UVULITIS [None]
